FAERS Safety Report 9047826 (Version 1)
Quarter: 2013Q1

REPORT INFORMATION
  Report Type: Spontaneous
  Country: US (occurrence: US)
  Receive Date: 20130204
  Receipt Date: 20130204
  Transmission Date: 20140127
  Serious: No
  Sender: FDA-Public Use
  Company Number: US-AMGEN-USASP2013001785

PATIENT
  Age: 54 Year
  Sex: Male

DRUGS (6)
  1. ENBREL [Suspect]
     Indication: PSORIATIC ARTHROPATHY
     Dosage: 50 MG, QWK
     Route: 058
     Dates: start: 2008
  2. ENBREL [Suspect]
     Indication: PSORIASIS
  3. LIPITOR [Concomitant]
     Dosage: UNK
  4. LISINOPRIL [Concomitant]
     Dosage: UNK
  5. CLOBETASOL [Concomitant]
     Dosage: UNK
  6. ALCOHOL [Concomitant]
     Dosage: UNK

REACTIONS (1)
  - Liver function test abnormal [Not Recovered/Not Resolved]
